FAERS Safety Report 12316621 (Version 3)
Quarter: 2016Q3

REPORT INFORMATION
  Report Type: Report from Study
  Country: DE (occurrence: DE)
  Receive Date: 20160429
  Receipt Date: 20160921
  Transmission Date: 20161109
  Serious: Yes (Hospitalization, Other)
  Sender: FDA-Public Use
  Company Number: DE-BRISTOL-MYERS SQUIBB COMPANY-BMS-2016-032552

PATIENT
  Age: 90 Year
  Sex: Female
  Weight: 73 kg

DRUGS (1)
  1. APIXABAN [Suspect]
     Active Substance: APIXABAN
     Indication: CEREBROVASCULAR ACCIDENT PROPHYLAXIS
     Dosage: 2.5 MG, BID
     Route: 048
     Dates: start: 20140613, end: 20140717

REACTIONS (3)
  - Haemorrhoidal haemorrhage [Unknown]
  - Traumatic haematoma [Unknown]
  - Cardiac failure [Unknown]

NARRATIVE: CASE EVENT DATE: 20151203
